APPROVED DRUG PRODUCT: ARGATROBAN
Active Ingredient: ARGATROBAN
Strength: 250MG/2.5ML (100MG/ML)
Dosage Form/Route: INJECTABLE;INJECTION
Application: A204120 | Product #001 | TE Code: AP
Applicant: HOSPIRA INC
Approved: Sep 21, 2016 | RLD: No | RS: Yes | Type: RX